FAERS Safety Report 5965799-1 (Version None)
Quarter: 2008Q4

REPORT INFORMATION
  Report Type: 
  Country: None (occurrence: None)
  Receive Date: 20081125
  Receipt Date: 20081117
  Transmission Date: 20090506
  Serious: Yes (Hospitalization)
  Sender: FDA-Public Use
  Company Number: FR-MERCK-0811USA03111

PATIENT
  Age: 84 Year
  Sex: Female

DRUGS (7)
  1. MODURETIC 5-50 [Suspect]
     Route: 048
     Dates: end: 20080623
  2. PROZAC [Suspect]
     Route: 048
     Dates: end: 20080723
  3. DIGOXIN [Concomitant]
     Route: 065
  4. CIPRALAN [Concomitant]
     Route: 065
  5. SIMVASTATIN [Concomitant]
     Route: 065
  6. ALPRAZOLAM [Concomitant]
     Route: 065
  7. THERALENE [Concomitant]
     Route: 065

REACTIONS (2)
  - GENERAL PHYSICAL HEALTH DETERIORATION [None]
  - HYPONATRAEMIA [None]
